FAERS Safety Report 6599420-9 (Version None)
Quarter: 2010Q1

REPORT INFORMATION
  Report Type: 
  Country: None (occurrence: None)
  Receive Date: 20100224
  Receipt Date: 20100218
  Transmission Date: 20100710
  Serious: Yes (Hospitalization)
  Sender: FDA-Public Use
  Company Number: JP-BAYER-201016613GPV

PATIENT
  Age: 80 Year
  Sex: Male

DRUGS (12)
  1. SORAFENIB [Suspect]
     Indication: HEPATIC NEOPLASM MALIGNANT
     Dosage: TOTAL DAILY DOSE: 800 MG
     Route: 048
     Dates: start: 20100122, end: 20100205
  2. AMARYL [Concomitant]
     Indication: DIABETES MELLITUS
  3. PREMINENT (LOSARTAN POTASSIUM W/HYDROCHLOROTHIAZIDE) [Concomitant]
     Indication: HYPERTENSION
  4. CALBLOCK [Concomitant]
     Indication: HYPERTENSION
  5. HARNAL [Concomitant]
     Indication: BENIGN PROSTATIC HYPERPLASIA
  6. GLUCOBAY [Concomitant]
     Indication: DIABETES MELLITUS
  7. KINEDAK [Concomitant]
     Indication: HYPERTENSION
  8. LASIX [Concomitant]
     Indication: BLOOD ALBUMIN DECREASED
     Dates: start: 20100205, end: 20100207
  9. ALDACTONE [Concomitant]
     Indication: BLOOD ALBUMIN DECREASED
     Dates: start: 20100206, end: 20100207
  10. XYLOCAINE [Concomitant]
     Indication: ORAL MUCOSA EROSION
     Dates: start: 20100205, end: 20100207
  11. AZUNOL [Concomitant]
     Indication: ORAL MUCOSA EROSION
     Dates: start: 20100205, end: 20100207
  12. FRANDOL [Concomitant]
     Indication: BENIGN PROSTATIC HYPERPLASIA
     Dates: start: 20100207, end: 20100207

REACTIONS (3)
  - DEHYDRATION [None]
  - HYPOALBUMINAEMIA [None]
  - HYPOGLYCAEMIA [None]
